FAERS Safety Report 14108466 (Version 1)
Quarter: 2017Q4

REPORT INFORMATION
  Report Type: Spontaneous
  Country: JP (occurrence: JP)
  Receive Date: 20171019
  Receipt Date: 20171019
  Transmission Date: 20180321
  Serious: Yes (Other)
  Sender: FDA-Public Use
  Company Number: JP-ALLERGAN-1759262US

PATIENT
  Age: 53 Year
  Sex: Female
  Weight: 39 kg

DRUGS (18)
  1. EFFEXOR [Concomitant]
     Active Substance: VENLAFAXINE HYDROCHLORIDE
     Dosage: UNK
     Dates: start: 20170113
  2. ALOSENN [Concomitant]
     Active Substance: SENNA LEAF
     Indication: WEIGHT DECREASED
     Dosage: UNK
     Dates: start: 2014
  3. AMITIZA [Suspect]
     Active Substance: LUBIPROSTONE
     Indication: CONSTIPATION
     Dosage: 24 ?G, BID
     Route: 048
     Dates: start: 20170407, end: 20170416
  4. MUCOSTA [Concomitant]
     Active Substance: REBAMIPIDE
     Dosage: UNK
     Dates: start: 20170602
  5. MAGNESIUM OXIDE. [Concomitant]
     Active Substance: MAGNESIUM OXIDE
     Indication: WEIGHT DECREASED
  6. LINACLOTIDE - BP [Suspect]
     Active Substance: LINACLOTIDE
     Dosage: 0.25 MG, ONCE A WEEK, AS NEEDED
     Route: 048
     Dates: start: 201707
  7. MYSLEE [Concomitant]
     Active Substance: ZOLPIDEM TARTRATE
     Dosage: UNK
     Dates: start: 20160701
  8. SHAKUYAKUKANZOTO [Concomitant]
     Active Substance: HERBALS
     Indication: MUSCLE SPASMS
     Dosage: UNK
     Dates: start: 20160322, end: 20170728
  9. MAGNESIUM OXIDE. [Concomitant]
     Active Substance: MAGNESIUM OXIDE
     Indication: CONSTIPATION
     Dosage: UNK
     Route: 048
     Dates: start: 2014
  10. ASPARA K [Concomitant]
     Active Substance: POTASSIUM ASPARTATE
     Dosage: UNK
     Dates: start: 20141225
  11. CEREKINON [Concomitant]
     Active Substance: TRIMEBUTINE
     Dosage: UNK
     Dates: start: 20170328
  12. LINACLOTIDE - BP [Suspect]
     Active Substance: LINACLOTIDE
     Indication: CONSTIPATION
     Dosage: 0.25 MG, BID
     Route: 048
     Dates: start: 20170416, end: 201707
  13. ACOFIDE [Concomitant]
     Active Substance: ACOTIAMIDE HYDROCHLORIDE
     Dosage: UNK
     Dates: start: 20150227
  14. ALOSENN [Concomitant]
     Active Substance: SENNA LEAF
     Indication: CONSTIPATION
  15. JUVELA N [Concomitant]
     Active Substance: TOCOPHERYL NICOTINATE, D-.ALPHA.
     Dosage: UNK
     Dates: start: 20151218
  16. ROZEREM [Concomitant]
     Active Substance: RAMELTEON
     Dosage: UNK
     Dates: start: 20141113
  17. SUVOREXANT. [Concomitant]
     Active Substance: SUVOREXANT
     Dosage: UNK
     Dates: start: 20150717
  18. PRIMPERAN [Concomitant]
     Active Substance: METOCLOPRAMIDE HYDROCHLORIDE
     Dosage: UNK
     Dates: start: 20161118

REACTIONS (3)
  - Off label use [Unknown]
  - Hypokalaemia [Recovering/Resolving]
  - Supraventricular extrasystoles [Recovering/Resolving]

NARRATIVE: CASE EVENT DATE: 201704
